FAERS Safety Report 14399901 (Version 8)
Quarter: 2022Q3

REPORT INFORMATION
  Report Type: Report from Study
  Country: US (occurrence: None)
  Receive Date: 20180117
  Receipt Date: 20220708
  Transmission Date: 20221027
  Serious: Yes (Hospitalization, Other)
  Sender: FDA-Public Use
  Company Number: US-ROCHE-2054196

PATIENT
  Age: 63 Year
  Sex: Male
  Weight: 89.9 kg

DRUGS (47)
  1. VENETOCLAX [Suspect]
     Active Substance: VENETOCLAX
     Indication: Diffuse large B-cell lymphoma
     Dosage: ON DAYS 3-12 IN CYCLE 1, AND DAYS 1-10 WITH ALL SUBSEQUENT CYCLES EXCEPT DOSE LEVEL -1?CYCLE 1 DAY 1
     Route: 048
     Dates: start: 20171227
  2. RITUXIMAB [Suspect]
     Active Substance: RITUXIMAB
     Indication: Diffuse large B-cell lymphoma
     Dosage: ON DAY 1 AND DAY 4 EACH CYCLE OF EPOCH-R
     Route: 042
     Dates: start: 20171227
  3. ETOPOSIDE [Suspect]
     Active Substance: ETOPOSIDE
     Indication: Diffuse large B-cell lymphoma
     Dosage: MOST RECENT DOSE 12/MAR/2018
     Route: 042
     Dates: start: 20171227
  4. VINCRISTINE SULFATE [Suspect]
     Active Substance: VINCRISTINE SULFATE
     Indication: Diffuse large B-cell lymphoma
     Dosage: MOST RECENT DOSE 12/MAR/2018
     Route: 042
     Dates: start: 20171227
  5. CYCLOPHOSPHAMIDE [Suspect]
     Active Substance: CYCLOPHOSPHAMIDE
     Indication: Diffuse large B-cell lymphoma
     Dosage: MOST RECENT DOSE 12/MAR/2018
     Route: 042
     Dates: start: 20171227
  6. PREDNISONE [Suspect]
     Active Substance: PREDNISONE
     Indication: Diffuse large B-cell lymphoma
     Dosage: MOST RECENT DOSE 12/MAR/2018
     Route: 048
     Dates: start: 20171227
  7. DOXORUBICIN HYDROCHLORIDE [Suspect]
     Active Substance: DOXORUBICIN HYDROCHLORIDE
     Indication: Diffuse large B-cell lymphoma
     Dosage: MOST RECENT DOSE 12/MAR/2018
     Route: 042
     Dates: start: 20171227
  8. ADRIAMYCIN [Concomitant]
     Active Substance: DOXORUBICIN HYDROCHLORIDE
  9. TYLENOL [Concomitant]
     Active Substance: ACETAMINOPHEN
  10. ONDANSETRON [Concomitant]
     Active Substance: ONDANSETRON
     Dosage: 1-2 TABLETS (4-8 MG TOTAL) BY MOUTH
  11. BENADRYL [Concomitant]
     Active Substance: DIPHENHYDRAMINE HYDROCHLORIDE
  12. ZOVIRAX [Concomitant]
     Active Substance: ACYCLOVIR
     Dosage: BY MOUTH
     Route: 048
     Dates: start: 20180227
  13. MAXIPIME [Concomitant]
     Active Substance: CEFEPIME HYDROCHLORIDE
     Dosage: 2G/50ML
     Route: 042
  14. ATIVAN [Concomitant]
     Active Substance: LORAZEPAM
     Route: 048
  15. COZAAR [Concomitant]
     Active Substance: LOSARTAN POTASSIUM
     Route: 048
  16. LOPRESSOR [Concomitant]
     Active Substance: METOPROLOL TARTRATE
     Route: 048
  17. PRILOSEC [Concomitant]
     Active Substance: OMEPRAZOLE MAGNESIUM
     Route: 048
  18. ZOFRAN [Concomitant]
     Active Substance: ONDANSETRON HYDROCHLORIDE
     Dosage: 4-8MG
     Route: 048
  19. OXYCODONE [Concomitant]
     Active Substance: OXYCODONE
     Route: 048
  20. POLYETHYLENE GLYCOL [Concomitant]
     Active Substance: POLYETHYLENE GLYCOL
     Route: 048
  21. COMPAZINE [Concomitant]
     Active Substance: PROCHLORPERAZINE MALEATE
     Indication: Nausea
     Route: 048
  22. COMPAZINE [Concomitant]
     Active Substance: PROCHLORPERAZINE MALEATE
     Indication: Vomiting
  23. SODIUM CHLORIDE [Concomitant]
     Active Substance: SODIUM CHLORIDE
     Route: 042
  24. FLOMAX [Concomitant]
     Active Substance: TAMSULOSIN HYDROCHLORIDE
     Route: 048
  25. LOVENOX [Concomitant]
     Active Substance: ENOXAPARIN SODIUM
     Route: 058
  26. LOVENOX [Concomitant]
     Active Substance: ENOXAPARIN SODIUM
     Dosage: 80 MG/0.8 ML SYRIGE?0.7 ML (70 MG TOTAL) UNDER THE SKIN
     Route: 058
  27. ALBUTEROL [Concomitant]
     Active Substance: ALBUTEROL
     Dosage: INHALE 2 PUFFS INTO THE LUNGS EVERY 6 HOURS AS NEEDED
  28. ASPIRIN [Concomitant]
     Active Substance: ASPIRIN
     Dosage: CHEWABLE TABLET
  29. VITAMIN D2 [Concomitant]
     Active Substance: ERGOCALCIFEROL
  30. ERTAPENEM SODIUM [Concomitant]
     Active Substance: ERTAPENEM SODIUM
     Route: 042
  31. HEPARIN SODIUM [Concomitant]
     Active Substance: HEPARIN SODIUM
     Dosage: 10 UNIT/ML KIT?INJECT 2-5 ML INTO VEIN
  32. LOPERAMIDE [Concomitant]
     Active Substance: LOPERAMIDE
     Indication: Diarrhoea
  33. ATIVAN [Concomitant]
     Active Substance: LORAZEPAM
     Indication: Anxiety
     Dosage: 1-2 TABLETS(0.5-1 MG TOTAL) AS NEEDED
  34. MELATONIN [Concomitant]
     Active Substance: MELATONIN
  35. TOPROL XL [Concomitant]
     Active Substance: METOPROLOL SUCCINATE
     Indication: Akathisia
     Dosage: 24 HOUR TABLET
  36. PRILOSEC [Concomitant]
     Active Substance: OMEPRAZOLE MAGNESIUM
  37. NEULASTA [Concomitant]
     Active Substance: PEGFILGRASTIM
     Dosage: 6 MG/0.6 ML AS NEEDED
     Route: 058
  38. MIRALAX [Concomitant]
     Active Substance: POLYETHYLENE GLYCOL 3350
     Indication: Constipation
  39. SENOKOT [Concomitant]
     Active Substance: SENNOSIDES
     Dosage: 2 TABLETS BY MOUTH NIGHTLY
  40. SODIUM CHLORIDE [Concomitant]
     Active Substance: SODIUM CHLORIDE
     Dosage: SYRIGE FLUSH?INJECT 1-20 ML INTO VEIN
  41. FLOMAX [Concomitant]
     Active Substance: TAMSULOSIN HYDROCHLORIDE
     Dosage: BY MOUTH NIGHTLY
  42. DIOVAN [Concomitant]
     Active Substance: VALSARTAN
  43. COLACE [Concomitant]
     Active Substance: DOCUSATE SODIUM
     Indication: Constipation
  44. IBUPROFEN [Concomitant]
     Active Substance: IBUPROFEN
     Indication: Flatulence
  45. MEPRON (UNITED STATES) [Concomitant]
  46. MEPRON (UNITED STATES) [Concomitant]
  47. METFORMIN [Concomitant]
     Active Substance: METFORMIN HYDROCHLORIDE

REACTIONS (10)
  - Febrile neutropenia [Unknown]
  - Bacteraemia [Recovered/Resolved]
  - Febrile neutropenia [Unknown]
  - Prostatic abscess [Unknown]
  - Escherichia urinary tract infection [Recovered/Resolved]
  - Urethral fistula [Unknown]
  - Lymphocyte count decreased [Recovered/Resolved]
  - Neutrophil count decreased [Recovered/Resolved]
  - Platelet count decreased [Recovered/Resolved]
  - White blood cell count decreased [Recovered/Resolved]

NARRATIVE: CASE EVENT DATE: 20180101
